FAERS Safety Report 4681056-8 (Version None)
Quarter: 2005Q2

REPORT INFORMATION
  Report Type: 
  Country: None (occurrence: None)
  Receive Date: 20050601
  Receipt Date: 20050513
  Transmission Date: 20051028
  Serious: Yes (Hospitalization, Other)
  Sender: FDA-Public Use
  Company Number: 2005004881

PATIENT
  Age: 50 Year
  Sex: Female

DRUGS (5)
  1. GEODON [Suspect]
     Indication: ILL-DEFINED DISORDER
     Dosage: UNKNOWN
     Route: 065
  2. METHADONE HCL [Suspect]
     Indication: ILL-DEFINED DISORDER
     Dosage: UNKNOWN
     Route: 065
  3. ALL OTHER THERAPEUTIC PRODUCTS (ALL OTHER THERAPEUTIC PRODUCTS) [Suspect]
     Indication: ILL-DEFINED DISORDER
     Dosage: UNKNOWN
     Route: 065
  4. DURAGESIC (FENTANYL) [Suspect]
     Indication: ILL-DEFINED DISORDER
     Dosage: UNKNOWN
     Route: 065
  5. FENTANYL [Suspect]
     Indication: ILL-DEFINED DISORDER
     Dosage: UNKNOWN
     Route: 065

REACTIONS (14)
  - AGGRESSION [None]
  - AGITATION [None]
  - ALKALOSIS [None]
  - ASTHMA [None]
  - CARDIAC ARREST [None]
  - HALLUCINATION [None]
  - HYPERKALAEMIA [None]
  - HYPOMAGNESAEMIA [None]
  - MENTAL STATUS CHANGES [None]
  - PAIN [None]
  - PSYCHOTIC DISORDER [None]
  - RHABDOMYOLYSIS [None]
  - TORSADE DE POINTES [None]
  - VENTRICULAR TACHYCARDIA [None]
